FAERS Safety Report 18247632 (Version 1)
Quarter: 2020Q3

REPORT INFORMATION
  Report Type: Spontaneous
  Country: GB (occurrence: GB)
  Receive Date: 20200909
  Receipt Date: 20200909
  Transmission Date: 20201103
  Serious: Yes (Hospitalization)
  Sender: FDA-Public Use
  Company Number: GB-PFIZER INC-2020345874

PATIENT
  Age: 78 Year
  Sex: Male

DRUGS (12)
  1. DEXAMETHASONE. [Concomitant]
     Active Substance: DEXAMETHASONE
     Dosage: 8 MG, 1X/DAY, FOR 3 DAYS ? ANTIEMETIC USE SHOULD NOW BE COMPLETED
  2. CETUXIMAB. [Suspect]
     Active Substance: CETUXIMAB
  3. NATECAL D3 [Concomitant]
     Active Substance: CALCIUM CARBONATE\CHOLECALCIFEROL
     Dosage: 2 DF, 1X/DAY, ?NOT IN BLISTER PACK
  4. ALLOPURINOL. [Concomitant]
     Active Substance: ALLOPURINOL
     Dosage: 100 MG, 1X/DAY, AFTER FOOD IN THE MORNING ? MEDICATION IN BLISTER PACK.
  5. FEXOFENADINE [Concomitant]
     Active Substance: FEXOFENADINE HYDROCHLORIDE
     Dosage: 180 MG, 1X/DAY
  6. SERTRALINE [Concomitant]
     Active Substance: SERTRALINE HYDROCHLORIDE
     Dosage: 50 MG, 1X/DAY, IN THE MORNING ? MEDICATION IN BLISTER PACK.
  7. FLUOROURACIL. [Suspect]
     Active Substance: FLUOROURACIL
  8. SIMVASTATIN. [Concomitant]
     Active Substance: SIMVASTATIN
     Dosage: 40 MG, 1X/DAY, AT NIGHT ? MEDICATION IN BLISTER PACK.
  9. ENSURE [Concomitant]
     Active Substance: AMINO ACIDS\DEXTROSE\ELECTROLYTES NOS\SOYBEAN OIL\VITAMINS
     Indication: NUTRITIONAL SUPPLEMENTATION
     Dosage: 400 ML, 1X/DAY
  10. IRINOTECAN HCL [Suspect]
     Active Substance: IRINOTECAN HYDROCHLORIDE
  11. DALTEPARIN SODIUM [Concomitant]
     Active Substance: DALTEPARIN SODIUM
     Dosage: 15000 IU, 1X/DAY, 5,000 UNITS (0.2ML) IN MORNING, 10,000 UNITS (O.4ML) AT TEA TIME AS DIRECTED
     Route: 058
  12. TAMSULOSIN [Concomitant]
     Active Substance: TAMSULOSIN
     Dosage: 400 UG, 1X/DAY, IN THE MORNING? MEDICATION IN BLISTER PACK.

REACTIONS (2)
  - Butterfly rash [Unknown]
  - Neutropenic sepsis [Unknown]
